FAERS Safety Report 13007255 (Version 2)
Quarter: 2019Q3

REPORT INFORMATION
  Report Type: Spontaneous
  Country: FR (occurrence: FR)
  Receive Date: 20161207
  Receipt Date: 20190726
  Transmission Date: 20191004
  Serious: Yes (Death, Hospitalization, Other)
  Sender: FDA-Public Use
  Company Number: FR-009507513-1612FRA001699

PATIENT
  Age: 44 Year
  Sex: Female
  Weight: 70 kg

DRUGS (26)
  1. FLUOROURACIL. [Suspect]
     Active Substance: FLUOROURACIL
     Dosage: CYCLE 2
     Route: 065
     Dates: start: 20160405, end: 20160405
  2. EPIRUBICIN [Suspect]
     Active Substance: EPIRUBICIN
     Dosage: CYCLE 3
     Route: 065
     Dates: start: 20160502, end: 20160502
  3. BACTRIM [Concomitant]
     Active Substance: SULFAMETHOXAZOLE\TRIMETHOPRIM
     Dosage: UNK
     Route: 065
  4. LASILIX [Concomitant]
     Active Substance: FUROSEMIDE
     Dosage: UNK
     Route: 065
  5. KEYTRUDA [Suspect]
     Active Substance: PEMBROLIZUMAB
     Indication: PRODUCT USED FOR UNKNOWN INDICATION
     Dosage: CYCLE 1
     Route: 065
     Dates: start: 20160831, end: 20160831
  6. KEYTRUDA [Suspect]
     Active Substance: PEMBROLIZUMAB
     Dosage: CYCLE 2
     Route: 042
     Dates: start: 20160921, end: 20160921
  7. FLUOROURACIL. [Suspect]
     Active Substance: FLUOROURACIL
     Indication: PRODUCT USED FOR UNKNOWN INDICATION
     Dosage: CYCLE 1
     Route: 065
     Dates: start: 20160315, end: 20160315
  8. CYCLOPHOSPHAMIDE. [Suspect]
     Active Substance: CYCLOPHOSPHAMIDE
     Dosage: CYCLE 3
     Route: 065
     Dates: start: 20160502, end: 20160502
  9. TAXOTERE [Concomitant]
     Active Substance: DOCETAXEL
     Dosage: C1, C2 - 13/JUN/2016, C3 ON 04/JUL/2016
     Route: 065
     Dates: start: 20160423
  10. FLUOROURACIL. [Suspect]
     Active Substance: FLUOROURACIL
     Dosage: CYCLE 3
     Route: 065
     Dates: start: 20160502, end: 20160502
  11. EPIRUBICIN [Suspect]
     Active Substance: EPIRUBICIN
     Dosage: CYCLE 2
     Route: 065
     Dates: start: 20160405, end: 20160405
  12. PROZAC [Concomitant]
     Active Substance: FLUOXETINE HYDROCHLORIDE
     Dosage: UNK
  13. TRIATEC (RAMIPRIL) [Concomitant]
     Active Substance: RAMIPRIL
     Dosage: UNK
     Route: 065
  14. ZELBORAF [Suspect]
     Active Substance: VEMURAFENIB
     Indication: METASTATIC MALIGNANT MELANOMA
     Dosage: 1960 MG, QD
     Route: 048
     Dates: start: 20150817, end: 20160826
  15. EPIRUBICIN [Suspect]
     Active Substance: EPIRUBICIN
     Indication: PRODUCT USED FOR UNKNOWN INDICATION
     Dosage: CYCLE 1
     Route: 065
     Dates: start: 20160315, end: 20160315
  16. CYCLOPHOSPHAMIDE. [Suspect]
     Active Substance: CYCLOPHOSPHAMIDE
     Dosage: CYCLE 2
     Route: 065
     Dates: start: 20160405, end: 20160405
  17. ZELBORAF [Suspect]
     Active Substance: VEMURAFENIB
     Dosage: 8 DOSAGE FORM, QD
     Route: 048
  18. PROCORALAN [Concomitant]
     Active Substance: IVABRADINE
     Dosage: UNK
     Route: 065
  19. IMODIUM [Concomitant]
     Active Substance: LOPERAMIDE HYDROCHLORIDE
     Indication: DIARRHOEA
     Dosage: UNK
  20. NEXIUM [Concomitant]
     Active Substance: ESOMEPRAZOLE MAGNESIUM
     Dosage: UNK
  21. COTELLIC [Suspect]
     Active Substance: COBIMETINIB
     Indication: METASTATIC MALIGNANT MELANOMA
     Dosage: 60 MILLIGRAM, QD
     Route: 048
     Dates: start: 20150817, end: 20160808
  22. ALDACTONE [Concomitant]
     Active Substance: SPIRONOLACTONE
     Dosage: UNK
     Route: 065
  23. CARDENSIEL [Concomitant]
     Active Substance: BISOPROLOL FUMARATE
     Dosage: UNK
     Route: 065
  24. TAXOTERE [Concomitant]
     Active Substance: DOCETAXEL
     Dosage: C1, C2 - 13/JUN/2016, C3 ON 04/JUL/2016
     Route: 065
     Dates: start: 20160613
  25. CYCLOPHOSPHAMIDE. [Suspect]
     Active Substance: CYCLOPHOSPHAMIDE
     Indication: PRODUCT USED FOR UNKNOWN INDICATION
     Dosage: CYCLE 1
     Route: 065
     Dates: start: 20160315, end: 20160315
  26. TAXOTERE [Concomitant]
     Active Substance: DOCETAXEL
     Dosage: C1, C2 - 13/JUN/2016, C3 ON 04/JUL/2016
     Route: 065
     Dates: start: 20160704

REACTIONS (4)
  - Intracranial pressure increased [Fatal]
  - Retinal vein occlusion [Recovered/Resolved]
  - Serous retinal detachment [Recovered/Resolved]
  - Uveitis [Recovered/Resolved]

NARRATIVE: CASE EVENT DATE: 20160805
